FAERS Safety Report 14876854 (Version 5)
Quarter: 2018Q2

REPORT INFORMATION
  Report Type: Report from Study
  Country: AU (occurrence: AU)
  Receive Date: 20180510
  Receipt Date: 20180604
  Transmission Date: 20180711
  Serious: Yes (Death, Hospitalization)
  Sender: FDA-Public Use
  Company Number: AU-CELGENEUS-AUS-20180502940

PATIENT
  Age: 80 Year
  Sex: Female
  Weight: 70.4 kg

DRUGS (20)
  1. VENETOCLAX. [Concomitant]
     Active Substance: VENETOCLAX
     Dosage: 20 MILLIGRAM
     Route: 048
     Dates: start: 20180424, end: 20180424
  2. POSACONAZOLE [Concomitant]
     Active Substance: POSACONAZOLE
     Indication: PROPHYLAXIS
     Dosage: 300 MILLIGRAM
     Route: 048
     Dates: start: 20180423, end: 20180501
  3. PARACETAMOL [Concomitant]
     Active Substance: ACETAMINOPHEN
     Indication: PYREXIA
     Dosage: 2000 MILLIGRAM
     Route: 048
     Dates: start: 20180424, end: 20180424
  4. VENETOCLAX. [Concomitant]
     Active Substance: VENETOCLAX
     Indication: ACUTE MYELOID LEUKAEMIA
     Dosage: 10 MILLIGRAM
     Route: 048
     Dates: start: 20180423, end: 20180423
  5. DOCUSATE-SENNA [Concomitant]
     Indication: CONSTIPATION
     Route: 048
     Dates: start: 20180425
  6. LOPERAMIDE [Concomitant]
     Active Substance: LOPERAMIDE
     Indication: PROPHYLAXIS
  7. OXYCODONE [Concomitant]
     Active Substance: OXYCODONE
     Indication: PAIN PROPHYLAXIS
     Route: 058
     Dates: start: 20180424
  8. THYROXINE [Concomitant]
     Active Substance: LEVOTHYROXINE
     Indication: HYPOTHYROIDISM
     Dosage: 100 MICROGRAM
     Route: 048
     Dates: start: 2013
  9. POSACONAZOLE [Concomitant]
     Active Substance: POSACONAZOLE
     Dosage: 1000 MILLIGRAM
     Route: 048
     Dates: start: 20180427, end: 20180427
  10. AZACITIDINE. [Suspect]
     Active Substance: AZACITIDINE
     Indication: ACUTE MYELOID LEUKAEMIA
     Dosage: 18.75 MILLIGRAM/SQ. METER
     Route: 058
     Dates: start: 20180423, end: 20180429
  11. AMLODIPINE [Concomitant]
     Active Substance: AMLODIPINE BESYLATE
     Indication: HYPOTHYROIDISM
     Dosage: 5 MICROGRAM
     Route: 048
     Dates: start: 20180423, end: 20180501
  12. VENETOCLAX. [Concomitant]
     Active Substance: VENETOCLAX
     Dosage: 50 MILLIGRAM
     Route: 048
     Dates: start: 20180425, end: 20180430
  13. ALLOPURINOL. [Concomitant]
     Active Substance: ALLOPURINOL
     Indication: TUMOUR LYSIS SYNDROME
     Dosage: 300 MILLIGRAM
     Route: 048
     Dates: start: 20180422
  14. PARACETAMOL [Concomitant]
     Active Substance: ACETAMINOPHEN
     Dosage: 1000 MILLIGRAM
     Route: 048
     Dates: start: 20180428, end: 20180501
  15. POSACONAZOLE [Concomitant]
     Active Substance: POSACONAZOLE
     Dosage: 1000 MILLIGRAM
     Route: 048
     Dates: start: 20180428, end: 20180501
  16. METOCLOPRAMIDE. [Concomitant]
     Active Substance: METOCLOPRAMIDE
     Indication: PROPHYLAXIS OF NAUSEA AND VOMITING
     Route: 048
     Dates: start: 20180423, end: 20180501
  17. BACTRIM [Concomitant]
     Active Substance: SULFAMETHOXAZOLE\TRIMETHOPRIM
     Indication: INFECTION PROPHYLAXIS
     Dosage: 160 MILLIGRAM
     Route: 048
     Dates: start: 20180423, end: 20180430
  18. ALLOPURINOL. [Concomitant]
     Active Substance: ALLOPURINOL
     Indication: PROPHYLAXIS
  19. PARACETAMOL [Concomitant]
     Active Substance: ACETAMINOPHEN
     Dosage: 1000 MILLIGRAM
     Route: 048
     Dates: start: 20180427, end: 20180427
  20. LOPERAMIDE [Concomitant]
     Active Substance: LOPERAMIDE
     Indication: DIARRHOEA
     Route: 048
     Dates: start: 20180423, end: 20180429

REACTIONS (1)
  - Acute respiratory failure [Fatal]

NARRATIVE: CASE EVENT DATE: 20180430
